FAERS Safety Report 9902039 (Version 2)
Quarter: 2014Q1

REPORT INFORMATION
  Report Type: Spontaneous
  Country: US (occurrence: US)
  Receive Date: 20140217
  Receipt Date: 20140217
  Transmission Date: 20141002
  Serious: No
  Sender: FDA-Public Use
  Company Number: US-GILEAD-2011-0047424

PATIENT
  Sex: Female

DRUGS (5)
  1. LETAIRIS [Suspect]
     Indication: PULMONARY HYPERTENSION
     Dosage: 10 MG, QD
     Route: 048
     Dates: start: 20081202
  2. LETAIRIS [Suspect]
     Indication: SCLERODERMA
     Dosage: 5 MG, UNK
     Route: 048
  3. TYVASO [Suspect]
     Dosage: UNK
  4. TOPROL XL [Suspect]
  5. CYTOXAN [Suspect]

REACTIONS (1)
  - Hypotension [Unknown]
